FAERS Safety Report 5611477-8 (Version None)
Quarter: 2008Q1

REPORT INFORMATION
  Report Type: 
  Country: None (occurrence: None)
  Receive Date: 20080201
  Receipt Date: 20070807
  Transmission Date: 20080703
  Serious: No
  Sender: FDA-Public Use
  Company Number: A0668691A

PATIENT
  Age: 72 Year
  Sex: Female

DRUGS (10)
  1. LOTRONEX [Suspect]
     Indication: IRRITABLE BOWEL SYNDROME
     Dosage: 1MG PER DAY
     Route: 048
     Dates: start: 20060901
  2. AMARYL [Concomitant]
  3. LANOXIN [Concomitant]
  4. COUMADIN [Concomitant]
  5. FOLIC ACID [Concomitant]
  6. GLUCOPHAGE [Concomitant]
  7. ALLOPURINOL [Concomitant]
  8. PREMARIN [Concomitant]
  9. HYZAAR [Concomitant]
  10. ACIPHEX [Concomitant]

REACTIONS (3)
  - BEZOAR [None]
  - DYSPHASIA [None]
  - IMPAIRED GASTRIC EMPTYING [None]
